FAERS Safety Report 4955289-7 (Version None)
Quarter: 2006Q1

REPORT INFORMATION
  Report Type: 
  Country: None (occurrence: None)
  Receive Date: 20060328
  Receipt Date: 20040901
  Transmission Date: 20060701
  Serious: Yes (Other)
  Sender: FDA-Public Use
  Company Number: DE-BRISTOL-MYERS SQUIBB COMPANY-13309240

PATIENT
  Age: 38 Year
  Sex: Male
  Weight: 64 kg

DRUGS (10)
  1. SUSTIVA [Suspect]
     Indication: HIV INFECTION
     Dates: start: 20020501, end: 20030301
  2. ZERIT [Suspect]
     Indication: HIV INFECTION
     Dosage: INTERRUPTED ON 06-MAY-2003
     Dates: start: 20020501
  3. LOPINAVIR + RITONAVIR [Concomitant]
     Indication: HIV INFECTION
     Dates: start: 20020501, end: 20021201
  4. LAMIVUDINE [Concomitant]
     Indication: HIV INFECTION
     Dosage: ART INTERRUPTED ON 06-MAY-2003.
     Dates: start: 20020301
  5. NEVIRAPINE [Concomitant]
     Indication: HIV INFECTION
     Dosage: ART INTERRUPTED ON 06-MAY-2003.
     Dates: start: 20030301
  6. TENOFOVIR [Concomitant]
     Indication: HIV INFECTION
     Dates: start: 20031212
  7. TARDOCILLIN [Concomitant]
     Indication: SYPHILIS
     Dates: start: 20030401, end: 20030501
  8. PEG-INTRON [Concomitant]
     Indication: HEPATITIS C
     Dates: start: 20030526
  9. PAROXETINE HCL [Concomitant]
     Indication: MENTAL STATUS CHANGES
     Dates: start: 20030101
  10. VENLAFAXINE HCL [Concomitant]
     Indication: MENTAL DISORDER
     Dates: start: 20031201, end: 20040301

REACTIONS (14)
  - CONDYLOMA ACUMINATUM [None]
  - DIARRHOEA [None]
  - DYSAESTHESIA [None]
  - GIARDIASIS [None]
  - HEPATIC STEATOSIS [None]
  - HEPATITIS C VIRUS [None]
  - INSOMNIA [None]
  - MENTAL DISORDER [None]
  - MENTAL STATUS CHANGES [None]
  - MOOD ALTERED [None]
  - PERIPHERAL COLDNESS [None]
  - SYPHILIS [None]
  - TRANSAMINASES INCREASED [None]
  - WEIGHT DECREASED [None]
